FAERS Safety Report 6456446-3 (Version None)
Quarter: 2009Q4

REPORT INFORMATION
  Report Type: 
  Country: None (occurrence: None)
  Receive Date: 20091125
  Receipt Date: 20091116
  Transmission Date: 20100525
  Serious: Yes (Other)
  Sender: FDA-Public Use
  Company Number: IE-AMGEN-UK366217

PATIENT
  Sex: Female
  Weight: 85.5 kg

DRUGS (14)
  1. ARANESP [Suspect]
     Indication: ANAEMIA
     Route: 058
     Dates: start: 20050518
  2. MIMPARA [Concomitant]
     Route: 065
  3. LANTHANUM CARBONATE [Concomitant]
     Route: 065
  4. CALCICHEW [Concomitant]
     Route: 065
  5. SEVELAMER [Concomitant]
     Route: 065
  6. ALFACALCIDOL [Concomitant]
     Route: 065
  7. MINOXIDIL [Concomitant]
     Route: 065
  8. ADALAT - SLOW RELEASE [Concomitant]
     Route: 065
  9. DOXAZOSIN [Concomitant]
     Route: 065
  10. METOPROLOL TARTRATE [Concomitant]
     Route: 065
  11. ORLISTAT [Concomitant]
     Route: 065
  12. FOLIC ACID [Concomitant]
     Route: 065
  13. FERROUS FUMARATE [Concomitant]
     Route: 065
  14. UNKNOWN [Concomitant]
     Route: 065

REACTIONS (2)
  - APLASIA PURE RED CELL [None]
  - THERAPEUTIC RESPONSE DECREASED [None]
